FAERS Safety Report 9838055 (Version 1)
Quarter: 2014Q1

REPORT INFORMATION
  Report Type: Spontaneous
  Country: FR (occurrence: FR)
  Receive Date: 20140123
  Receipt Date: 20140123
  Transmission Date: 20141002
  Serious: Yes (Death, Life-Threatening, Other)
  Sender: FDA-Public Use
  Company Number: FR-PFIZER INC-2014019271

PATIENT
  Age: 54 Year
  Sex: Female
  Weight: 66.4 kg

DRUGS (2)
  1. PRODILANTIN [Suspect]
     Indication: STATUS EPILEPTICUS
     Dosage: 1000 MG, 1X/DAY
     Route: 042
     Dates: start: 20140105, end: 20140105
  2. AMIODARONE [Suspect]
     Dosage: UNK

REACTIONS (4)
  - Atrioventricular block complete [Fatal]
  - Cardiac arrest [Fatal]
  - Hypoxic-ischaemic encephalopathy [Fatal]
  - Multi-organ failure [Fatal]
